FAERS Safety Report 5677337-1 (Version None)
Quarter: 2008Q1

REPORT INFORMATION
  Report Type: 
  Country: None (occurrence: None)
  Receive Date: 20080318
  Receipt Date: 20080305
  Transmission Date: 20080703
  Serious: Yes (Other)
  Sender: FDA-Public Use
  Company Number: 2008JP001088

PATIENT
  Age: 84 Year
  Sex: Female

DRUGS (7)
  1. VESICARE [Suspect]
     Indication: HYPERTONIC BLADDER
     Dosage: 2.5 MG, /D, ORAL
     Route: 048
     Dates: start: 20071005, end: 20080114
  2. VESICARE [Suspect]
     Indication: HYPERTONIC BLADDER
     Dosage: 2.5 MG, /D, ORAL
     Route: 048
     Dates: start: 20080115, end: 20080202
  3. TAKEPRON   (LANSOPRAZOLE) ORODISPERSIBLE CR TABLET [Concomitant]
  4. NITRODERM [Concomitant]
  5. WARFARIN SODIUM [Concomitant]
  6. LASIX [Concomitant]
  7. ALDACTONE [Concomitant]

REACTIONS (4)
  - CARDIAC FAILURE [None]
  - CONDITION AGGRAVATED [None]
  - OEDEMA PERIPHERAL [None]
  - RENAL FAILURE [None]
